FAERS Safety Report 5511039-7 (Version None)
Quarter: 2007Q4

REPORT INFORMATION
  Report Type: 
  Country: None (occurrence: None)
  Receive Date: 20071109
  Receipt Date: 20071101
  Transmission Date: 20080405
  Serious: Yes (Other)
  Sender: FDA-Public Use
  Company Number: US-JNJFOC-20071100922

PATIENT
  Sex: Female
  Weight: 51.26 kg

DRUGS (4)
  1. INVEGA [Suspect]
     Indication: DRUG USE FOR UNKNOWN INDICATION
     Route: 048
  2. CYMBALTA [Concomitant]
     Indication: INSOMNIA
  3. DURAGESIC-100 [Concomitant]
     Indication: PAIN
     Route: 062
  4. NICOTINE [Concomitant]
     Indication: SMOKING CESSATION THERAPY
     Route: 055

REACTIONS (5)
  - ARRHYTHMIA [None]
  - INSOMNIA [None]
  - NERVOUSNESS [None]
  - PSYCHOMOTOR HYPERACTIVITY [None]
  - TACHYCARDIA [None]
